FAERS Safety Report 6222022-0 (Version None)
Quarter: 2009Q2

REPORT INFORMATION
  Report Type: 
  Country: None (occurrence: None)
  Receive Date: 20090611
  Receipt Date: 20090604
  Transmission Date: 20091009
  Serious: Yes (Hospitalization)
  Sender: FDA-Public Use
  Company Number: US-JNJFOC-20090603118

PATIENT
  Sex: Male

DRUGS (4)
  1. LEVAQUIN [Suspect]
     Indication: RESPIRATORY TRACT CONGESTION
     Route: 048
  2. GEMZAR [Concomitant]
     Indication: NEOPLASM MALIGNANT
     Route: 065
  3. TARCEVA [Concomitant]
     Indication: NEOPLASM MALIGNANT
     Route: 065
  4. SOTALOL HYDROCHLORIDE [Concomitant]
     Indication: CARDIAC DISORDER
     Route: 065

REACTIONS (5)
  - ABASIA [None]
  - BODY TEMPERATURE INCREASED [None]
  - CHILLS [None]
  - DRUG HYPERSENSITIVITY [None]
  - VOMITING [None]
